FAERS Safety Report 5355961-3 (Version None)
Quarter: 2007Q2

REPORT INFORMATION
  Report Type: 
  Country: None (occurrence: None)
  Receive Date: 20070613
  Receipt Date: 20070604
  Transmission Date: 20071010
  Serious: Yes (Other)
  Sender: FDA-Public Use
  Company Number: US-SANOFI-SYNTHELABO-A03200703529

PATIENT
  Age: 29 Year
  Sex: Female

DRUGS (1)
  1. AMBIEN [Suspect]
     Indication: INSOMNIA
     Route: 048
     Dates: start: 20040101

REACTIONS (5)
  - AMNESIA [None]
  - DRUG DEPENDENCE [None]
  - IMPAIRED DRIVING ABILITY [None]
  - SLEEP TALKING [None]
  - SLEEP WALKING [None]
